FAERS Safety Report 8079625-0 (Version None)
Quarter: 2012Q1

REPORT INFORMATION
  Report Type: 
  Country: None (occurrence: None)
  Receive Date: 20120128
  Receipt Date: 20110801
  Transmission Date: 20120608
  Serious: No
  Sender: FDA-Public Use
  Company Number: US-ABBOTT-11P-163-0843324-00

PATIENT
  Age: 52 Year
  Sex: Female

DRUGS (5)
  1. BENADRYL [Concomitant]
     Indication: PRODUCT USED FOR UNKNOWN INDICATION
  2. NASACORT [Concomitant]
     Indication: HYPERSENSITIVITY
  3. PREDNISONE TAB [Concomitant]
     Dosage: TAPERING DOSE
  4. HUMIRA [Suspect]
     Indication: PSORIASIS
     Dates: start: 20110615
  5. MUCINEX [Concomitant]
     Indication: HYPERSENSITIVITY
     Route: 048

REACTIONS (5)
  - NASAL DISORDER [None]
  - HIDRADENITIS [None]
  - OEDEMA PERIPHERAL [None]
  - MUSCULAR WEAKNESS [None]
  - SKIN EXFOLIATION [None]
